FAERS Safety Report 9376194 (Version 2)
Quarter: 2013Q3

REPORT INFORMATION
  Report Type: Spontaneous
  Country: US (occurrence: US)
  Receive Date: 20130630
  Receipt Date: 20130702
  Transmission Date: 20140515
  Serious: No
  Sender: FDA-Public Use
  Company Number: US-ROCHE-1243041

PATIENT
  Sex: Female

DRUGS (3)
  1. ROCEPHIN [Suspect]
     Indication: ESCHERICHIA INFECTION
     Route: 065
  2. ROCEPHIN [Suspect]
     Indication: URINARY TRACT INFECTION
  3. ROCEPHIN [Suspect]
     Indication: STAPHYLOCOCCAL INFECTION

REACTIONS (1)
  - Arthralgia [Recovered/Resolved]
